FAERS Safety Report 7017343-8 (Version None)
Quarter: 2010Q3

REPORT INFORMATION
  Report Type: 
  Country: None (occurrence: None)
  Receive Date: 20100928
  Receipt Date: 20100923
  Transmission Date: 20110219
  Serious: No
  Sender: FDA-Public Use
  Company Number: US-BIOGENIDEC-2010BI032958

PATIENT
  Age: 52 Year
  Sex: Female

DRUGS (1)
  1. AVONEX [Suspect]
     Indication: MULTIPLE SCLEROSIS
     Route: 030
     Dates: start: 20100922

REACTIONS (3)
  - DIZZINESS [None]
  - INFLUENZA LIKE ILLNESS [None]
  - NASOPHARYNGITIS [None]
